FAERS Safety Report 15827238 (Version 1)
Quarter: 2019Q1

REPORT INFORMATION
  Report Type: Other
  Country: GB (occurrence: GB)
  Receive Date: 20190115
  Receipt Date: 20190115
  Transmission Date: 20190417
  Serious: Yes (Other)
  Sender: FDA-Public Use
  Company Number: GB-HERITAGE PHARMACEUTICALS-2018HTG00306

PATIENT

DRUGS (3)
  1. FLUOXETINE [Suspect]
     Active Substance: FLUOXETINE HYDROCHLORIDE
     Indication: BIPOLAR DISORDER
     Dosage: 60 MG, 1X/DAY
     Route: 048
     Dates: start: 1995
  2. FLUPENTIXOL [Concomitant]
     Active Substance: FLUPENTIXOL
     Indication: MANIA
     Dosage: 80 MG, 4X/WEEK
     Dates: start: 2006
  3. PROCYCLIDINE [Concomitant]
     Active Substance: PROCYCLIDINE
     Indication: TREMOR
     Dosage: 5 MG, 1X/DAY

REACTIONS (6)
  - Anorgasmia [Not Recovered/Not Resolved]
  - Memory impairment [Not Recovered/Not Resolved]
  - Rectal abscess [Not Recovered/Not Resolved]
  - Hyponatraemia [Unknown]
  - Fluid overload [Unknown]
  - Trichorrhexis [Unknown]

NARRATIVE: CASE EVENT DATE: 2000
